FAERS Safety Report 25678277 (Version 1)
Quarter: 2025Q3

REPORT INFORMATION
  Report Type: Spontaneous
  Country: US (occurrence: US)
  Receive Date: 20250813
  Receipt Date: 20250813
  Transmission Date: 20251020
  Serious: No
  Sender: ALEXION PHARMACEUTICALS
  Company Number: US-AstraZeneca-CH-00929575AP

PATIENT
  Sex: Female

DRUGS (1)
  1. BUDESONIDE\FORMOTEROL FUMARATE [Suspect]
     Active Substance: BUDESONIDE\FORMOTEROL FUMARATE
     Indication: Asthma
     Dosage: UNK, BID
     Route: 065
     Dates: start: 202504

REACTIONS (4)
  - Incorrect dose administered by device [Unknown]
  - Device use issue [Unknown]
  - Chest discomfort [Unknown]
  - Wrong technique in product usage process [Unknown]
